FAERS Safety Report 20515081 (Version 1)
Quarter: 2022Q1

REPORT INFORMATION
  Report Type: Spontaneous
  Country: CN (occurrence: None)
  Receive Date: 20220224
  Receipt Date: 20220224
  Transmission Date: 20220423
  Serious: Yes (Hospitalization)
  Sender: FDA-Public Use
  Company Number: 2022A076043

PATIENT
  Age: 25414 Day
  Sex: Male
  Weight: 57 kg

DRUGS (4)
  1. DAPAGLIFLOZIN [Suspect]
     Active Substance: DAPAGLIFLOZIN
     Indication: Hyperglycaemia
     Route: 048
     Dates: start: 20220207, end: 20220211
  2. METFORMIN HYDROCHLORIDE [Suspect]
     Active Substance: METFORMIN HYDROCHLORIDE
     Indication: Hyperglycaemia
     Route: 048
     Dates: start: 20220207, end: 20220211
  3. INSULIN ASPART\INSULIN DEGLUDEC [Suspect]
     Active Substance: INSULIN ASPART\INSULIN DEGLUDEC
     Indication: Hyperglycaemia
     Dosage: 10 UNITS, TWICE EVERY ONE DAY
     Route: 058
     Dates: start: 20220207, end: 20220211
  4. ACARBOSE [Suspect]
     Active Substance: ACARBOSE
     Indication: Hyperglycaemia
     Route: 048
     Dates: start: 20220207, end: 20220211

REACTIONS (1)
  - Hypoglycaemic coma [Recovered/Resolved]

NARRATIVE: CASE EVENT DATE: 20220211
